FAERS Safety Report 15896069 (Version 2)
Quarter: 2020Q2

REPORT INFORMATION
  Report Type: Report from Study
  Country: US (occurrence: US)
  Receive Date: 20190131
  Receipt Date: 20200401
  Transmission Date: 20200713
  Serious: No
  Sender: FDA-Public Use
  Company Number: US-SA-2019SA024971

PATIENT
  Age: 13 Year
  Sex: Female

DRUGS (3)
  1. IMIGLUCERASE [Suspect]
     Active Substance: IMIGLUCERASE
     Dosage: 4400 U, QOW
     Route: 042
  2. IMIGLUCERASE [Suspect]
     Active Substance: IMIGLUCERASE
     Indication: GAUCHER^S DISEASE
     Dosage: 4400 MG, QOW
     Route: 042
     Dates: start: 20051010
  3. IMIGLUCERASE [Suspect]
     Active Substance: IMIGLUCERASE
     Dosage: 4400 MG, QOW
     Route: 042
     Dates: start: 20141030

REACTIONS (4)
  - Product dose omission [Unknown]
  - Myalgia [Recovered/Resolved]
  - Road traffic accident [Recovered/Resolved]
  - Pain [Recovered/Resolved]

NARRATIVE: CASE EVENT DATE: 20181213
